FAERS Safety Report 10128802 (Version 2)
Quarter: 2014Q2

REPORT INFORMATION
  Report Type: Report from Study
  Country: US (occurrence: US)
  Receive Date: 20140428
  Receipt Date: 20140516
  Transmission Date: 20141212
  Serious: Yes (Other)
  Sender: FDA-Public Use
  Company Number: US-SA-2014SA052728

PATIENT
  Age: 75 Year
  Sex: Female

DRUGS (2)
  1. LANTUS SOLOSTAR [Suspect]
     Indication: BLOOD GLUCOSE ABNORMAL
     Route: 065
  2. SOLOSTAR [Concomitant]

REACTIONS (2)
  - Intracranial aneurysm [Recovered/Resolved]
  - Speech disorder [Recovered/Resolved]
